FAERS Safety Report 12880879 (Version 1)
Quarter: 2016Q4

REPORT INFORMATION
  Report Type: Spontaneous
  Country: US (occurrence: US)
  Receive Date: 20161024
  Receipt Date: 20161024
  Transmission Date: 20170207
  Serious: Yes (Life-Threatening)
  Sender: FDA-Public Use
  Company Number: None

PATIENT
  Age: 71 Year
  Sex: Male
  Weight: 100.5 kg

DRUGS (1)
  1. ACTIVASE [Suspect]
     Active Substance: ALTEPLASE
     Indication: ISCHAEMIC STROKE
     Dates: start: 20161023

REACTIONS (6)
  - Oedema peripheral [None]
  - Angioedema [None]
  - Lip swelling [None]
  - Paraesthesia [None]
  - Dysphagia [None]
  - Cheilitis [None]

NARRATIVE: CASE EVENT DATE: 20161023
